FAERS Safety Report 9069620 (Version 1)
Quarter: 2013Q1

REPORT INFORMATION
  Report Type: Report from Study
  Country: NL (occurrence: NL)
  Receive Date: 20130215
  Receipt Date: 20130215
  Transmission Date: 20140127
  Serious: Yes (Death, Life-Threatening, Hospitalization, Disabling, Other)
  Sender: FDA-Public Use
  Company Number: NL-ASTRAZENECA-2013SE06218

PATIENT
  Age: 26581 Day
  Sex: Female

DRUGS (13)
  1. AZD6140 [Suspect]
     Indication: ACUTE MYOCARDIAL INFARCTION
     Dosage: LATE ADMINISTRATION (IN-HOSPITAL)
     Route: 048
     Dates: start: 20130109, end: 20130109
  2. AZD6140 [Suspect]
     Indication: ACUTE MYOCARDIAL INFARCTION
     Dosage: LATE ADMINISTRATION (IN-HOSPITAL)
     Route: 048
     Dates: start: 20130110, end: 20130124
  3. ACETYLSALICYLACID [Concomitant]
     Route: 048
     Dates: start: 20130109, end: 20130109
  4. ACETYLSALICYLACID [Concomitant]
     Route: 048
     Dates: start: 20130109
  5. ALENDRONINEACID [Concomitant]
     Route: 048
     Dates: start: 20130114
  6. LOSARTAN [Concomitant]
     Route: 048
     Dates: start: 20130111
  7. HYDROCHLOROTHIAZIDE [Concomitant]
     Route: 048
     Dates: start: 20130111
  8. CALCIUMCARBONAAT/COLECALCIFEROL [Concomitant]
     Route: 048
     Dates: start: 20130110
  9. SIMVASTATINE [Concomitant]
     Route: 048
     Dates: start: 20130109
  10. METOPROLOL [Concomitant]
     Route: 048
     Dates: start: 20130109
  11. HALOPERIDOL [Concomitant]
     Route: 048
     Dates: start: 20130109
  12. AMOXICILINE/CLAVULAANACID [Concomitant]
     Route: 048
     Dates: start: 20130114
  13. MOVICOLON [Concomitant]
     Route: 048
     Dates: start: 20130109

REACTIONS (1)
  - Cerebral haemorrhage [Fatal]
